FAERS Safety Report 7993970-6 (Version None)
Quarter: 2011Q4

REPORT INFORMATION
  Report Type: 
  Country: None (occurrence: None)
  Receive Date: 20111220
  Receipt Date: 20111208
  Transmission Date: 20120403
  Serious: Yes (Hospitalization, Other)
  Sender: FDA-Public Use
  Company Number: US-BAYER-2011-089779

PATIENT
  Age: 32 Year
  Sex: Female

DRUGS (5)
  1. IRON [Concomitant]
  2. YAZ [Suspect]
     Indication: PREMENSTRUAL SYNDROME
     Dosage: UNK
     Route: 048
     Dates: start: 20060601, end: 20070101
  3. ACETAMINOPHEN W/ CODEINE [Concomitant]
     Dosage: UNK
     Dates: start: 20060622
  4. YAZ [Suspect]
  5. AMPICILLIN [Concomitant]
     Dosage: 250 MG, UNK
     Dates: start: 20060622

REACTIONS (3)
  - CHOLECYSTITIS [None]
  - GALLBLADDER INJURY [None]
  - MENTAL DISORDER [None]
